FAERS Safety Report 12162143 (Version 2)
Quarter: 2016Q1

REPORT INFORMATION
  Report Type: Spontaneous
  Country: JP (occurrence: JP)
  Receive Date: 20160309
  Receipt Date: 20160328
  Transmission Date: 20160526
  Serious: Yes (Hospitalization)
  Sender: FDA-Public Use
  Company Number: JP-ROCHE-1723378

PATIENT
  Age: 35 Year
  Sex: Female
  Weight: 81 kg

DRUGS (7)
  1. AVASTIN [Suspect]
     Active Substance: BEVACIZUMAB
     Indication: BREAST CANCER
     Route: 041
     Dates: start: 20160115, end: 20160209
  2. TEPRENONE [Concomitant]
     Active Substance: TEPRENONE
     Route: 048
     Dates: start: 20151112
  3. TRYPTANOL [Concomitant]
     Active Substance: AMITRIPTYLINE
     Route: 065
     Dates: start: 20151221
  4. LOXOPROFEN [Concomitant]
     Active Substance: LOXOPROFEN
     Route: 048
     Dates: start: 20151214
  5. PACLITAXEL. [Suspect]
     Active Substance: PACLITAXEL
     Indication: BREAST CANCER
     Dosage: 3 DAYS ADMINISTRATION FOLLOWED BY 1 DAYS REST
     Route: 041
     Dates: start: 20160115, end: 20160216
  6. LYRICA [Concomitant]
     Active Substance: PREGABALIN
     Route: 048
     Dates: start: 20151221
  7. OXYCONTIN [Concomitant]
     Active Substance: OXYCODONE HYDROCHLORIDE
     Route: 065
     Dates: start: 20160112

REACTIONS (4)
  - Impaired healing [Unknown]
  - Chest wall necrosis [Not Recovered/Not Resolved]
  - Thoracic haemorrhage [Unknown]
  - Anaemia [Unknown]

NARRATIVE: CASE EVENT DATE: 20160222
